FAERS Safety Report 16790165 (Version 1)
Quarter: 2019Q3

REPORT INFORMATION
  Report Type: Spontaneous
  Country: US (occurrence: US)
  Receive Date: 20190910
  Receipt Date: 20190910
  Transmission Date: 20191005
  Serious: Yes (Death, Life-Threatening, Hospitalization, Other)
  Sender: FDA-Public Use
  Company Number: US-LUPIN PHARMACEUTICALS INC.-2019-05766

PATIENT
  Age: 14 Year
  Sex: Female

DRUGS (3)
  1. HYDROXYCHLOROQUINE SULFATE TABLETS [Suspect]
     Active Substance: HYDROXYCHLOROQUINE SULFATE
     Indication: PRODUCT USED FOR UNKNOWN INDICATION
     Dosage: APPROXIMATELY 60 TABLETS
     Route: 065
  2. NAPROXEN. [Suspect]
     Active Substance: NAPROXEN
     Indication: PRODUCT USED FOR UNKNOWN INDICATION
     Dosage: UNK, SEVRAL
     Route: 065
  3. IBUPROFEN. [Suspect]
     Active Substance: IBUPROFEN
     Indication: PRODUCT USED FOR UNKNOWN INDICATION
     Dosage: UNK, UNKNOWN QUANTITY
     Route: 065

REACTIONS (7)
  - Toxicity to various agents [Fatal]
  - Pulmonary oedema [Unknown]
  - Renal failure [Unknown]
  - Hypokalaemia [Unknown]
  - Intentional overdose [Fatal]
  - Metabolic acidosis [Unknown]
  - Cardiac arrest [Fatal]
